FAERS Safety Report 5779794-9 (Version None)
Quarter: 2008Q2

REPORT INFORMATION
  Report Type: 
  Country: None (occurrence: None)
  Receive Date: 20080618
  Receipt Date: 20080607
  Transmission Date: 20081010
  Serious: Yes (Other)
  Sender: FDA-Public Use
  Company Number: TPH-00054

PATIENT
  Age: 23 Year
  Sex: Female

DRUGS (2)
  1. TRIQUILAR LOT NO. : UNKNOWN [Suspect]
     Indication: ORAL CONTRACEPTION
     Dosage: ORAL
     Route: 048
     Dates: start: 20040101, end: 20050101
  2. TRIQUILAR LOT NO. : 1606A [Suspect]
     Dosage: ORAL
     Route: 048
     Dates: start: 20080101

REACTIONS (8)
  - ABORTION THREATENED [None]
  - DRUG EXPOSURE DURING PREGNANCY [None]
  - HEADACHE [None]
  - INAPPROPRIATE SCHEDULE OF DRUG ADMINISTRATION [None]
  - MATERNAL DRUGS AFFECTING FOETUS [None]
  - MENSTRUATION DELAYED [None]
  - PREGNANCY ON ORAL CONTRACEPTIVE [None]
  - VOMITING [None]
